FAERS Safety Report 6569614-7 (Version None)
Quarter: 2010Q1

REPORT INFORMATION
  Report Type: 
  Country: None (occurrence: None)
  Receive Date: 20100129
  Receipt Date: 20100114
  Transmission Date: 20100710
  Serious: Yes (Hospitalization, Other)
  Sender: FDA-Public Use
  Company Number: 004509

PATIENT
  Sex: Male
  Weight: 96.1626 kg

DRUGS (10)
  1. LACOSAMIDE [Suspect]
     Indication: EPILEPSY
     Dosage: 300 MG BID ORAL
     Route: 048
     Dates: start: 20080508
  2. KEPPRA [Concomitant]
  3. LORTAB [Concomitant]
  4. LORAZEPAM [Concomitant]
  5. DIASTAT [Concomitant]
  6. ZOFRAN [Concomitant]
  7. ACYCLOVIR [Concomitant]
  8. PHENERGAN HCL [Concomitant]
  9. TEGRETOL [Concomitant]
  10. TETRACAINE POLYGYL STERILE OPHTHALMIC SOLUTION [Concomitant]

REACTIONS (3)
  - CHEST PAIN [None]
  - DIZZINESS [None]
  - VISION BLURRED [None]
